FAERS Safety Report 6127948-4 (Version None)
Quarter: 2009Q1

REPORT INFORMATION
  Report Type: 
  Country: None (occurrence: None)
  Receive Date: 20090323
  Receipt Date: 20090317
  Transmission Date: 20090719
  Serious: Yes (Life-Threatening)
  Sender: FDA-Public Use
  Company Number: DE-ASTRAZENECA-2009PK00889

PATIENT
  Sex: Male

DRUGS (8)
  1. MEROPENEM [Suspect]
     Indication: SEPSIS
     Route: 041
     Dates: start: 20081106, end: 20081113
  2. MEROPENEM [Suspect]
     Indication: SEPTIC SHOCK
     Route: 041
     Dates: start: 20081106, end: 20081113
  3. MOXIFLOXACIN HCL [Suspect]
     Indication: SEPSIS
     Route: 041
     Dates: start: 20081106, end: 20081113
  4. MOXIFLOXACIN HCL [Suspect]
     Indication: SEPTIC SHOCK
     Route: 041
     Dates: start: 20081106, end: 20081113
  5. NOREPINEPHRINE [Concomitant]
     Indication: HYPOTENSION
     Route: 041
     Dates: start: 20081118
  6. TIGECYCLINE [Concomitant]
     Indication: WOUND INFECTION STAPHYLOCOCCAL
     Route: 041
     Dates: start: 20081118
  7. MIDAZOLAM HCL [Concomitant]
     Indication: SEDATION
     Route: 041
     Dates: start: 20081118, end: 20081120
  8. EPINEPHRINE [Concomitant]
     Indication: HYPOTENSION
     Route: 041
     Dates: start: 20081118

REACTIONS (2)
  - CARDIAC TAMPONADE [None]
  - PERICARDIAL HAEMORRHAGE [None]
